FAERS Safety Report 5908298-5 (Version None)
Quarter: 2008Q4

REPORT INFORMATION
  Report Type: 
  Country: None (occurrence: None)
  Receive Date: 20081002
  Receipt Date: 20081002
  Transmission Date: 20090506
  Serious: Yes (Hospitalization, Disabling)
  Sender: FDA-Public Use
  Company Number: None

PATIENT
  Sex: Female

DRUGS (3)
  1. ATIVAN [Suspect]
     Indication: ANXIETY
     Dosage: 1-2 MG 3-4 TIMES
  2. ATIVAN [Suspect]
     Indication: CONVULSION
     Dosage: 1-2 MG 3-4 TIMES
  3. ATIVAN [Suspect]
     Indication: MUSCLE DISORDER
     Dosage: 1-2 MG 3-4 TIMES

REACTIONS (9)
  - ANURIA [None]
  - BLADDER DISORDER [None]
  - CONSTIPATION [None]
  - DEPRESSION [None]
  - EAR DISORDER [None]
  - GAIT DISTURBANCE [None]
  - MUSCLE DISORDER [None]
  - OEDEMA [None]
  - RENAL DISORDER [None]
